FAERS Safety Report 21522520 (Version 39)
Quarter: 2025Q1

REPORT INFORMATION
  Report Type: Spontaneous
  Country: CA (occurrence: CA)
  Receive Date: 20221029
  Receipt Date: 20250320
  Transmission Date: 20250409
  Serious: Yes (Hospitalization, Other)
  Sender: CELLTRION
  Company Number: CA-CELLTRION INC.-2022CA017927

PATIENT

DRUGS (41)
  1. INFLECTRA [Suspect]
     Active Substance: INFLIXIMAB-DYYB
     Indication: Colitis ulcerative
     Route: 042
     Dates: start: 20221013
  2. INFLECTRA [Suspect]
     Active Substance: INFLIXIMAB-DYYB
     Route: 042
     Dates: start: 20221025
  3. INFLECTRA [Suspect]
     Active Substance: INFLIXIMAB-DYYB
     Route: 042
     Dates: start: 20221124, end: 20221124
  4. INFLECTRA [Suspect]
     Active Substance: INFLIXIMAB-DYYB
     Route: 042
     Dates: start: 20221206
  5. INFLECTRA [Suspect]
     Active Substance: INFLIXIMAB-DYYB
     Route: 042
     Dates: start: 20230206, end: 20230206
  6. INFLECTRA [Suspect]
     Active Substance: INFLIXIMAB-DYYB
     Route: 042
     Dates: start: 20230407
  7. INFLECTRA [Suspect]
     Active Substance: INFLIXIMAB-DYYB
     Route: 042
     Dates: start: 20230602
  8. INFLECTRA [Suspect]
     Active Substance: INFLIXIMAB-DYYB
     Route: 042
     Dates: start: 20230728
  9. INFLECTRA [Suspect]
     Active Substance: INFLIXIMAB-DYYB
     Route: 042
     Dates: start: 20230922
  10. INFLECTRA [Suspect]
     Active Substance: INFLIXIMAB-DYYB
     Route: 042
     Dates: start: 20231130
  11. INFLECTRA [Suspect]
     Active Substance: INFLIXIMAB-DYYB
     Route: 042
     Dates: start: 20231222
  12. INFLECTRA [Suspect]
     Active Substance: INFLIXIMAB-DYYB
     Route: 042
     Dates: start: 20240202
  13. INFLECTRA [Suspect]
     Active Substance: INFLIXIMAB-DYYB
     Route: 042
     Dates: start: 20240306
  14. INFLECTRA [Suspect]
     Active Substance: INFLIXIMAB-DYYB
     Route: 042
     Dates: start: 20240405
  15. INFLECTRA [Suspect]
     Active Substance: INFLIXIMAB-DYYB
     Route: 042
     Dates: start: 20240726
  16. INFLECTRA [Suspect]
     Active Substance: INFLIXIMAB-DYYB
     Route: 042
     Dates: start: 20240823
  17. INFLECTRA [Suspect]
     Active Substance: INFLIXIMAB-DYYB
     Route: 042
     Dates: start: 20240916
  18. INFLECTRA [Suspect]
     Active Substance: INFLIXIMAB-DYYB
     Route: 042
     Dates: start: 20241018
  19. INFLECTRA [Suspect]
     Active Substance: INFLIXIMAB-DYYB
     Route: 042
     Dates: start: 20241129
  20. INFLECTRA [Suspect]
     Active Substance: INFLIXIMAB-DYYB
     Route: 042
     Dates: start: 20250103
  21. INFLECTRA [Suspect]
     Active Substance: INFLIXIMAB-DYYB
     Route: 042
     Dates: start: 20250210
  22. INFLECTRA [Suspect]
     Active Substance: INFLIXIMAB-DYYB
     Route: 042
     Dates: start: 20250310
  23. AMLODIPINE [Concomitant]
     Active Substance: AMLODIPINE BESYLATE
  24. BREO ELLIPTA [Concomitant]
     Active Substance: FLUTICASONE FUROATE\VILANTEROL TRIFENATATE
  25. DUTASTERIDE [Concomitant]
     Active Substance: DUTASTERIDE
  26. EZETIMIBE [Concomitant]
     Active Substance: EZETIMIBE
  27. FERROUS FUMARATE [Concomitant]
     Active Substance: FERROUS FUMARATE
  28. FUROSEMIDE [Concomitant]
     Active Substance: FUROSEMIDE
  29. IRON [Concomitant]
     Active Substance: IRON
     Route: 048
  30. LORAZEPAM [Concomitant]
     Active Substance: LORAZEPAM
  31. METOPROLOL [Concomitant]
     Active Substance: METOPROLOL
  32. PANTOPRAZOLE [Concomitant]
     Active Substance: PANTOPRAZOLE
  33. PREDNISONE [Concomitant]
     Active Substance: PREDNISONE
  34. ROSUVASTATIN [Concomitant]
     Active Substance: ROSUVASTATIN
  35. ALBUTEROL [Concomitant]
     Active Substance: ALBUTEROL
  36. SPIRIVA [Concomitant]
     Active Substance: TIOTROPIUM BROMIDE MONOHYDRATE
  37. SOLU-MEDROL [Concomitant]
     Active Substance: METHYLPREDNISOLONE SODIUM SUCCINATE
     Indication: Colitis ulcerative
  38. LINAGLIPTIN [Concomitant]
     Active Substance: LINAGLIPTIN
  39. CHOLECALCIFEROL [Concomitant]
     Active Substance: CHOLECALCIFEROL
  40. WARFARIN [Concomitant]
     Active Substance: WARFARIN
  41. WARFARIN [Concomitant]
     Active Substance: WARFARIN

REACTIONS (20)
  - Condition aggravated [Unknown]
  - Pneumonia [Not Recovered/Not Resolved]
  - Clostridium difficile infection [Recovered/Resolved]
  - Condition aggravated [Not Recovered/Not Resolved]
  - Drug ineffective [Not Recovered/Not Resolved]
  - Therapy non-responder [Unknown]
  - Therapeutic response shortened [Unknown]
  - Drug level decreased [Unknown]
  - Asthenia [Not Recovered/Not Resolved]
  - Mobility decreased [Not Recovered/Not Resolved]
  - Gait disturbance [Not Recovered/Not Resolved]
  - Fatigue [Not Recovered/Not Resolved]
  - Bronchitis [Not Recovered/Not Resolved]
  - Somnolence [Unknown]
  - Respiratory tract infection viral [Recovered/Resolved]
  - Flank pain [Not Recovered/Not Resolved]
  - Nausea [Not Recovered/Not Resolved]
  - Constipation [Recovered/Resolved]
  - Off label use [Unknown]
  - Off label use [Unknown]

NARRATIVE: CASE EVENT DATE: 20220101
